APPROVED DRUG PRODUCT: BUMETANIDE
Active Ingredient: BUMETANIDE
Strength: 0.25MG/ML
Dosage Form/Route: INJECTABLE;INJECTION
Application: A219116 | Product #001 | TE Code: AP
Applicant: QILU PHARMACEUTICAL HAINAN CO LTD
Approved: Sep 19, 2024 | RLD: No | RS: No | Type: RX